FAERS Safety Report 9294019 (Version 1)
Quarter: 2013Q1

REPORT INFORMATION
  Report Type: Spontaneous
  Country: US (occurrence: None)
  Receive Date: 20121227
  Receipt Date: 20121227
  Transmission Date: 20140127
  Serious: Yes (Hospitalization, Disabling, Other)
  Sender: FDA-Public Use
  Company Number: PHEH2012US012047

PATIENT
  Age: 21 Year
  Sex: Female
  Weight: 72.3 kg

DRUGS (8)
  1. EXJADE [Suspect]
     Indication: IRON OVERLOAD
     Dosage: 500 MG, DAILY BEFORE A MEAL, ORAL
     Route: 048
     Dates: start: 201108, end: 201110
  2. OXYCODONE (OXYCODONE) [Concomitant]
  3. FOLIC ACID (FOLIC ACID) [Concomitant]
  4. HYDROXYUREA (HYDROXYCARBAMIDE) [Concomitant]
  5. COMPAZINE (PROCHLORPERAZINE EDISYLATE) [Concomitant]
  6. FENTANYL (FENTANYL) [Concomitant]
  7. DILAUDID (HYDROMORPHONE HYDROCHLORIDE) [Concomitant]
  8. HYDREA (HYDROXYCARBAMIDE) [Concomitant]

REACTIONS (16)
  - Sickle cell anaemia with crisis [None]
  - Monocyte count increased [None]
  - Lymphocyte count decreased [None]
  - White blood cell count increased [None]
  - Neutrophilia [None]
  - Neutrophil count decreased [None]
  - Platelet count increased [None]
  - Nausea [None]
  - Red blood cell count decreased [None]
  - Haematocrit decreased [None]
  - Mean cell volume decreased [None]
  - Red cell distribution width increased [None]
  - Anaemia [None]
  - Haemoglobin decreased [None]
  - Dizziness [None]
  - Asthenia [None]
